FAERS Safety Report 22325769 (Version 1)
Quarter: 2023Q2

REPORT INFORMATION
  Report Type: Spontaneous
  Country: US (occurrence: US)
  Receive Date: 20230516
  Receipt Date: 20230516
  Transmission Date: 20230722
  Serious: No
  Sender: FDA-Public Use
  Company Number: US-ANIPHARMA-2023-US-005462

PATIENT
  Sex: Female

DRUGS (1)
  1. CORTICOTROPIN [Suspect]
     Active Substance: CORTICOTROPIN
     Indication: Lupus nephritis
     Dosage: 80 UNITS 2 TIMES A WEEK
     Route: 058
     Dates: start: 20230124

REACTIONS (1)
  - Dizziness [Unknown]
